FAERS Safety Report 5221722-9 (Version None)
Quarter: 2007Q1

REPORT INFORMATION
  Report Type: 
  Country: None (occurrence: None)
  Receive Date: 20070129
  Receipt Date: 20070117
  Transmission Date: 20070707
  Serious: Yes (Hospitalization)
  Sender: FDA-Public Use
  Company Number: PHRM2007FR00604

PATIENT
  Age: 59 Year
  Sex: Male

DRUGS (2)
  1. VOLTAREN [Suspect]
     Indication: BACK PAIN
     Dosage: 75 MG, QD
     Route: 030
     Dates: start: 20040818
  2. VOLTAREN [Suspect]
     Route: 030
     Dates: start: 20060601, end: 20060601

REACTIONS (6)
  - CYST [None]
  - FAT NECROSIS [None]
  - FIBROSIS [None]
  - HAEMATOMA [None]
  - INFLAMMATION [None]
  - PAIN [None]
